FAERS Safety Report 19165622 (Version 1)
Quarter: 2021Q2

REPORT INFORMATION
  Report Type: Spontaneous
  Country: US (occurrence: US)
  Receive Date: 20210421
  Receipt Date: 20210421
  Transmission Date: 20210717
  Serious: No
  Sender: FDA-Public Use
  Company Number: US-ZOGENIX INTERNATIONAL LIMITED, A WHOLLY OWNED SUBSIDIARY OF ZOGENIX, INC.-2021ZX000019

PATIENT
  Age: 5 Year
  Sex: Male

DRUGS (7)
  1. KLONOPIN [Concomitant]
     Active Substance: CLONAZEPAM
     Indication: SEIZURE
     Route: 065
  2. ONFI [Concomitant]
     Active Substance: CLOBAZAM
     Indication: SEIZURE
     Dosage: 5 MG QAM?15 MG QPM
     Route: 065
  3. VALTOCO [Concomitant]
     Active Substance: DIAZEPAM
     Indication: SEIZURE
     Route: 065
  4. FINTEPLA [Suspect]
     Active Substance: FENFLURAMINE
     Indication: IDIOPATHIC GENERALISED EPILEPSY
     Route: 048
     Dates: start: 202010
  5. DEPAKOTE SPRINKLES [Concomitant]
     Active Substance: DIVALPROEX SODIUM
     Indication: SEIZURE
     Route: 048
  6. CYTRA?K [Concomitant]
     Active Substance: CITRIC ACID MONOHYDRATE\POTASSIUM CITRATE
     Indication: KETOGENIC DIET
     Route: 065
  7. MELATONIN [Concomitant]
     Active Substance: MELATONIN
     Indication: INSOMNIA
     Route: 065

REACTIONS (3)
  - Drug ineffective [Unknown]
  - Seizure [Unknown]
  - Off label use [Unknown]

NARRATIVE: CASE EVENT DATE: 20210112
